FAERS Safety Report 7527523-0 (Version None)
Quarter: 2011Q2

REPORT INFORMATION
  Report Type: 
  Country: None (occurrence: None)
  Receive Date: 20110512
  Receipt Date: 20110210
  Transmission Date: 20111010
  Serious: No
  Sender: FDA-Public Use
  Company Number: 1000018771

PATIENT
  Age: 55 Year
  Sex: Female

DRUGS (7)
  1. SAVELLA [Suspect]
     Indication: FIBROMYALGIA
     Dosage: ORAL
     Route: 048
     Dates: start: 20100101, end: 20100101
  2. TEMAZEPAM [Concomitant]
  3. CYTOMEL (LIOTHYRONNIE SODIUM) (LIOTHYRONINE SODIUM) [Concomitant]
  4. FLUCONAZOLE [Concomitant]
  5. SYNTHROID (LEVOTHYROXINE SODIUM) (LEVOTHYROXINE SODIUM) [Concomitant]
  6. ADVIL (IBUPROFEN) (IBUPROFEN) [Concomitant]
  7. LYRICA (PREGABALIN) (TABLETS) (PREGABALIN) [Concomitant]

REACTIONS (1)
  - FEELING JITTERY [None]
